FAERS Safety Report 16576010 (Version 6)
Quarter: 2019Q3

REPORT INFORMATION
  Report Type: Report from Study
  Country: US (occurrence: US)
  Receive Date: 20190716
  Receipt Date: 20190923
  Transmission Date: 20191004
  Serious: Yes (Death, Hospitalization, Other)
  Sender: FDA-Public Use
  Company Number: US-ROCHE-2342228

PATIENT
  Age: 53 Year
  Sex: Female
  Weight: 58.57 kg

DRUGS (9)
  1. MOTRIN [Concomitant]
     Active Substance: IBUPROFEN
     Route: 065
     Dates: start: 20190513
  2. AMLODIPINE [Concomitant]
     Active Substance: AMLODIPINE BESYLATE
     Route: 065
     Dates: start: 2018
  3. PROCHLORPERAZINE. [Concomitant]
     Active Substance: PROCHLORPERAZINE
     Route: 065
     Dates: start: 20190413
  4. METFORMIN [Concomitant]
     Active Substance: METFORMIN HYDROCHLORIDE
     Route: 048
     Dates: start: 2009
  5. RAMIPRIL. [Concomitant]
     Active Substance: RAMIPRIL
     Route: 065
     Dates: start: 2018
  6. ATEZOLIZUMAB. [Suspect]
     Active Substance: ATEZOLIZUMAB
     Indication: TRANSITIONAL CELL CARCINOMA METASTATIC
     Route: 041
     Dates: start: 20190401, end: 20190513
  7. TRAMADOL. [Concomitant]
     Active Substance: TRAMADOL
     Route: 065
     Dates: start: 20190401
  8. GUADECITABINE [Suspect]
     Active Substance: GUADECITABINE
     Indication: TRANSITIONAL CELL CARCINOMA METASTATIC
     Dosage: ON DAYS 1 THROUGH 5 OF THE 6 WEEK CYCLE
     Route: 058
     Dates: start: 20190401, end: 20190517
  9. ZOFRAN [Concomitant]
     Active Substance: ONDANSETRON HYDROCHLORIDE
     Route: 065
     Dates: start: 20190328

REACTIONS (8)
  - Haematemesis [Unknown]
  - Haemorrhage intracranial [Fatal]
  - Traumatic intracranial haemorrhage [Recovered/Resolved]
  - Vomiting [Unknown]
  - Gastritis [Unknown]
  - Brain neoplasm malignant [Fatal]
  - Arthralgia [Unknown]
  - Fatigue [Recovered/Resolved]

NARRATIVE: CASE EVENT DATE: 20190528
